FAERS Safety Report 19263909 (Version 1)
Quarter: 2021Q2

REPORT INFORMATION
  Report Type: Spontaneous
  Country: CA (occurrence: CA)
  Receive Date: 20210517
  Receipt Date: 20210517
  Transmission Date: 20210717
  Serious: Yes (Other)
  Sender: FDA-Public Use
  Company Number: CA-TEVA-2021-CA-1910893

PATIENT
  Sex: Female

DRUGS (1)
  1. TEVA RISEDRONATE [Suspect]
     Active Substance: RISEDRONATE SODIUM
     Dosage: TEVA RISEDRONATE 35 MG
     Route: 065

REACTIONS (2)
  - Internal haemorrhage [Unknown]
  - Tooth loss [Unknown]

NARRATIVE: CASE EVENT DATE: 2012
